FAERS Safety Report 4818539-3 (Version None)
Quarter: 2005Q4

REPORT INFORMATION
  Report Type: 
  Country: None (occurrence: None)
  Receive Date: 20051031
  Receipt Date: 20051022
  Transmission Date: 20060501
  Serious: Yes (Other)
  Sender: FDA-Public Use
  Company Number: 2005121268

PATIENT
  Sex: Male

DRUGS (1)
  1. GLUCOTROL [Suspect]
     Indication: DIABETES MELLITUS

REACTIONS (2)
  - RENAL IMPAIRMENT [None]
  - WEIGHT INCREASED [None]
